FAERS Safety Report 22273407 (Version 1)
Quarter: 2023Q2

REPORT INFORMATION
  Report Type: Spontaneous
  Country: IT (occurrence: IT)
  Receive Date: 20230502
  Receipt Date: 20230502
  Transmission Date: 20230721
  Serious: Yes (Hospitalization, Other)
  Sender: FDA-Public Use
  Company Number: IT-PFM-2023-02507

PATIENT

DRUGS (9)
  1. PROPRANOLOL [Suspect]
     Active Substance: PROPRANOLOL HYDROCHLORIDE
     Indication: Hyperthyroidism
     Dosage: 40 MG, QID (4/DAY)
     Route: 065
  2. PROPRANOLOL [Suspect]
     Active Substance: PROPRANOLOL HYDROCHLORIDE
     Indication: Off label use
     Dosage: 80 MG, BID (2/DAY)
     Route: 065
  3. METHIMAZOLE [Suspect]
     Active Substance: METHIMAZOLE
     Indication: Hyperthyroidism
     Dosage: 30 MG, BID (2/DAY)
     Route: 065
  4. PREDNISONE [Suspect]
     Active Substance: PREDNISONE
     Indication: Hyperthyroidism
     Dosage: 25 MG, BID (2/DAY)
     Route: 065
  5. DIGOXIN [Suspect]
     Active Substance: DIGOXIN
     Indication: Heart rate
     Dosage: 0.25 MG
     Route: 065
  6. AMIODARONE [Suspect]
     Active Substance: AMIODARONE
     Indication: Heart rate
     Dosage: UNK
     Route: 065
  7. SODIUM PERCHLORATE [Suspect]
     Active Substance: SODIUM PERCHLORATE
     Indication: Hyperthyroidism
     Dosage: 10 ORAL DROPS TWICE DAILY
     Route: 048
  8. PROPYLTHIOURACIL [Suspect]
     Active Substance: PROPYLTHIOURACIL
     Indication: Hyperthyroidism
     Dosage: 200 MG, BID (2/DAY)
     Route: 065
  9. DEXAMETHASONE [Suspect]
     Active Substance: DEXAMETHASONE
     Indication: Hyperthyroidism
     Dosage: 4 MG, BID (2/DAY)
     Route: 065

REACTIONS (7)
  - Atrial fibrillation [Unknown]
  - Hyperhidrosis [Unknown]
  - Tremor [Unknown]
  - Product use in unapproved indication [Unknown]
  - Inappropriate schedule of product administration [Unknown]
  - Product use issue [Unknown]
  - Off label use [Unknown]
